FAERS Safety Report 18527275 (Version 1)
Quarter: 2020Q4

REPORT INFORMATION
  Report Type: Spontaneous
  Country: US (occurrence: US)
  Receive Date: 20201119
  Receipt Date: 20201119
  Transmission Date: 20210114
  Serious: No
  Sender: FDA-Public Use
  Company Number: None

PATIENT
  Age: 54 Year
  Sex: Female
  Weight: 64.5 kg

DRUGS (6)
  1. NUTRITIONAL DRINK BOOST [Concomitant]
  2. COLLACE [Concomitant]
  3. VELPHOROR [Concomitant]
  4. LOPERSOR [Concomitant]
  5. PARSABIV [Suspect]
     Active Substance: ETELCALCETIDE HYDROCHLORIDE
     Indication: HYPERPARATHYROIDISM SECONDARY
     Dosage: ?          QUANTITY:3 MCG OR MG;?
     Route: 042
     Dates: start: 20201029, end: 20201119
  6. GLIPIZIPE [Concomitant]

REACTIONS (9)
  - Nausea [None]
  - Vomiting [None]
  - Diarrhoea [None]
  - Dyspnoea [None]
  - Dialysis [None]
  - Feeling abnormal [None]
  - Dizziness [None]
  - Pruritus [None]
  - Blood pressure decreased [None]

NARRATIVE: CASE EVENT DATE: 20201119
